FAERS Safety Report 8127059-2 (Version None)
Quarter: 2012Q1

REPORT INFORMATION
  Report Type: 
  Country: None (occurrence: None)
  Receive Date: 20120210
  Receipt Date: 20120131
  Transmission Date: 20120608
  Serious: Yes (Other)
  Sender: FDA-Public Use
  Company Number: US-JNJFOC-20120200972

PATIENT
  Sex: Male
  Weight: 118.39 kg

DRUGS (12)
  1. REMICADE [Suspect]
     Route: 042
     Dates: start: 20100101
  2. PERCOCET [Suspect]
     Indication: PAIN
     Route: 048
     Dates: start: 20070101, end: 20100101
  3. ZOLOFT [Concomitant]
     Route: 048
     Dates: start: 20070101, end: 20110101
  4. INSULIN [Concomitant]
     Indication: DIABETES MELLITUS
     Route: 058
     Dates: start: 19990101
  5. FOLIC ACID [Concomitant]
     Indication: RHEUMATOID ARTHRITIS
     Route: 048
  6. REMICADE [Suspect]
     Indication: RHEUMATOID ARTHRITIS
     Route: 042
     Dates: start: 20090101
  7. CRESTOR [Concomitant]
     Indication: BLOOD CHOLESTEROL INCREASED
     Route: 048
     Dates: start: 20110101
  8. ATARAX [Concomitant]
     Indication: SLEEP DISORDER
     Dosage: DOSE: AS NEEDED
     Route: 048
  9. GLUCOVANCE [Concomitant]
     Indication: DIABETES MELLITUS
     Dosage: DOSE: 2.5-500 MG
     Route: 048
     Dates: start: 19990101
  10. UNIVASC [Concomitant]
     Indication: HYPERTENSION
     Route: 048
  11. METHOTREXATE [Concomitant]
     Indication: RHEUMATOID ARTHRITIS
     Route: 048
  12. FLEXERIL [Concomitant]
     Indication: PAIN
     Dosage: DOSE: AS NEEDED FOR PAIN
     Route: 065
     Dates: start: 20070101

REACTIONS (2)
  - MOVEMENT DISORDER [None]
  - FIBROMYALGIA [None]
